FAERS Safety Report 6370983-1 (Version None)
Quarter: 2009Q3

REPORT INFORMATION
  Report Type: 
  Country: None (occurrence: None)
  Receive Date: 20090921
  Receipt Date: 20090921
  Transmission Date: 20100115
  Serious: No
  Sender: FDA-Public Use
  Company Number: None

PATIENT
  Sex: Female
  Weight: 82.1011 kg

DRUGS (1)
  1. CLOZAPINE [Suspect]
     Indication: SCHIZOPHRENIA, PARANOID TYPE
     Dosage: CLOZAPINE 400MG 9A  9P PO;  CLOZAPINE 100MG 5P PO
     Route: 048
     Dates: start: 20090815, end: 20090916

REACTIONS (6)
  - ACTIVITIES OF DAILY LIVING IMPAIRED [None]
  - DELUSION [None]
  - DEPRESSED MOOD [None]
  - DIZZINESS [None]
  - HALLUCINATION, AUDITORY [None]
  - PRODUCT SUBSTITUTION ISSUE [None]
